FAERS Safety Report 7227620-3 (Version None)
Quarter: 2011Q1

REPORT INFORMATION
  Report Type: 
  Country: None (occurrence: None)
  Receive Date: 20110114
  Receipt Date: 20110112
  Transmission Date: 20110831
  Serious: No
  Sender: FDA-Public Use
  Company Number: US-PFIZER INC-2011008263

PATIENT
  Sex: Female
  Weight: 67.574 kg

DRUGS (6)
  1. BENICAR [Concomitant]
     Indication: HYPERTENSION
     Dosage: 40 MG, 1X/DAY
  2. CALCIUM [Concomitant]
     Dosage: 1200 MG, 1X/DAY
  3. LYRICA [Suspect]
     Indication: SCIATICA
     Dosage: 50 MG, 1X/DAY
     Route: 048
     Dates: start: 20100101, end: 20100101
  4. LYRICA [Suspect]
     Dosage: 75 MG, 1X/DAY
     Dates: start: 20100101, end: 20100101
  5. FOSAMAX [Concomitant]
     Indication: OSTEOPOROSIS
     Dosage: UNK, WEEKLY
  6. LYRICA [Suspect]
     Dosage: 50 MG, 2X/DAY
     Dates: start: 20100101

REACTIONS (3)
  - DRUG INEFFECTIVE [None]
  - PRURITUS [None]
  - WEIGHT INCREASED [None]
